FAERS Safety Report 21707107 (Version 1)
Quarter: 2022Q4

REPORT INFORMATION
  Report Type: Spontaneous
  Country: US (occurrence: US)
  Receive Date: 20221209
  Receipt Date: 20221209
  Transmission Date: 20230113
  Serious: No
  Sender: FDA-Public Use
  Company Number: US-BAYER-2022P026305

PATIENT
  Age: 39 Year
  Sex: Female

DRUGS (1)
  1. MIRENA [Suspect]
     Active Substance: LEVONORGESTREL
     Indication: Premenstrual syndrome
     Dosage: 20?G/DAY
     Route: 015
     Dates: start: 201809

REACTIONS (3)
  - Premenstrual dysphoric disorder [None]
  - Off label use of device [None]
  - Device use issue [None]
